FAERS Safety Report 11162298 (Version 1)
Quarter: 2015Q2

REPORT INFORMATION
  Report Type: Spontaneous
  Country: US (occurrence: None)
  Receive Date: 20150603
  Receipt Date: 20150603
  Transmission Date: 20150821
  Serious: Yes (Other)
  Sender: FDA-Public Use
  Company Number: None

PATIENT
  Age: 24 Year
  Sex: Female
  Weight: 54.43 kg

DRUGS (2)
  1. MAKENA [Suspect]
     Active Substance: HYDROXYPROGESTERONE CAPROATE
     Indication: PREMATURE LABOUR
  2. MAKENA [Concomitant]
     Active Substance: HYDROXYPROGESTERONE CAPROATE

REACTIONS (3)
  - Injection site pain [None]
  - Injection site erythema [None]
  - Fatigue [None]

NARRATIVE: CASE EVENT DATE: 20150601
